FAERS Safety Report 25278245 (Version 2)
Quarter: 2025Q3

REPORT INFORMATION
  Report Type: Spontaneous
  Country: EU (occurrence: EU)
  Receive Date: 20250507
  Receipt Date: 20250718
  Transmission Date: 20251021
  Serious: Yes (Hospitalization)
  Sender: TAKEDA
  Company Number: None

PATIENT
  Age: 65 Year
  Sex: Female
  Weight: 54 kg

DRUGS (7)
  1. KIOVIG [Suspect]
     Active Substance: HUMAN IMMUNOGLOBULIN G
     Indication: Nephropathy
     Dosage: 20 GRAM, QD
     Dates: start: 20250424, end: 20250424
  2. ENVARSUS XR [Concomitant]
     Active Substance: TACROLIMUS
  3. CERTICAN [Concomitant]
     Active Substance: EVEROLIMUS
  4. REPAGLINIDE [Concomitant]
     Active Substance: REPAGLINIDE
  5. CITALOPRAM [Concomitant]
     Active Substance: CITALOPRAM
  6. LANTUS [Concomitant]
     Active Substance: INSULIN GLARGINE
  7. CHOLECALCIFEROL [Concomitant]
     Active Substance: CHOLECALCIFEROL

REACTIONS (2)
  - Hypertension [Recovered/Resolved]
  - Infusion related reaction [Recovered/Resolved]

NARRATIVE: CASE EVENT DATE: 20250424
